FAERS Safety Report 10162625 (Version 2)
Quarter: 2014Q2

REPORT INFORMATION
  Report Type: Spontaneous
  Country: US (occurrence: US)
  Receive Date: 20140509
  Receipt Date: 20140527
  Transmission Date: 20141212
  Serious: No
  Sender: FDA-Public Use
  Company Number: US-PFIZER INC-2014126603

PATIENT
  Age: 73 Year
  Sex: Female
  Weight: 82.54 kg

DRUGS (1)
  1. CELEBREX [Suspect]
     Indication: ARTHRALGIA
     Dosage: UNK
     Dates: start: 2014

REACTIONS (3)
  - Rash [Unknown]
  - Asthenia [Unknown]
  - Heart rate increased [Unknown]
